FAERS Safety Report 4852970-5 (Version None)
Quarter: 2005Q4

REPORT INFORMATION
  Report Type: 
  Country: None (occurrence: None)
  Receive Date: 20051212
  Receipt Date: 20050317
  Transmission Date: 20060501
  Serious: Yes (Hospitalization)
  Sender: FDA-Public Use
  Company Number: 2005-03-2429

PATIENT
  Age: 9 Month
  Sex: Female

DRUGS (3)
  1. CLARAYNE (LORATADINE) TABLETS [Suspect]
     Dosage: 10 MG ORAL
     Route: 048
     Dates: start: 20021218, end: 20021218
  2. INFLIXIMAB (ANTI-TNF ANTIBODY) INJECTABLE [Suspect]
     Indication: CROHN'S DISEASE
     Dosage: 225 MG INTRAVENOUS
     Route: 042
     Dates: start: 20021218, end: 20021218
  3. PARACETAMOL [Suspect]
     Dosage: 1.0 GR
     Dates: start: 20021218

REACTIONS (6)
  - DYSPNOEA [None]
  - HYPERTENSION [None]
  - NAUSEA [None]
  - PHOTOSENSITIVITY REACTION [None]
  - TACHYCARDIA [None]
  - VOMITING [None]
